FAERS Safety Report 9023570 (Version 1)
Quarter: 2013Q1

REPORT INFORMATION
  Report Type: Spontaneous
  Country: BR (occurrence: BR)
  Receive Date: 20130121
  Receipt Date: 20130121
  Transmission Date: 20140127
  Serious: Yes (Other)
  Sender: FDA-Public Use
  Company Number: PHHY2013BR004956

PATIENT
  Sex: Female
  Weight: 60 kg

DRUGS (5)
  1. VITALUX PLUS [Suspect]
     Indication: EYELID DEGENERATIVE DISORDER
     Dosage: 1 DF, DAILY
     Route: 048
  2. DIOVAN HCT [Suspect]
     Indication: HYPERTENSION
     Dosage: 1 DF, BID
     Route: 048
  3. SUSTRATE [Concomitant]
     Indication: HEART RATE INCREASED
     Dosage: 2 DF, DAILY
  4. OPTIVE [Concomitant]
     Indication: EYE LUBRICATION THERAPY
     Dosage: 1 DRP, DAILY
  5. VASTAREL [Concomitant]

REACTIONS (2)
  - Fall [Not Recovered/Not Resolved]
  - Femur fracture [Not Recovered/Not Resolved]
